FAERS Safety Report 24548572 (Version 3)
Quarter: 2025Q1

REPORT INFORMATION
  Report Type: Other
  Country: GB (occurrence: GB)
  Receive Date: 20241025
  Receipt Date: 20250212
  Transmission Date: 20250409
  Serious: Yes (Disabling, Other)
  Sender: MACLEODS
  Company Number: GB-MACLEODS PHARMA-MAC2024049978

PATIENT

DRUGS (4)
  1. EMTRICITABINE\TENOFOVIR DISOPROXIL [Suspect]
     Active Substance: EMTRICITABINE\TENOFOVIR DISOPROXIL
     Indication: Product used for unknown indication
     Dosage: TAB/CAPS (NUMBER OF COURSE 1, NO PRIOR TO CONCEPTION, EXPOSURE DURING 2ND TRI
     Route: 064
     Dates: start: 20240509
  2. RITONAVIR [Suspect]
     Active Substance: RITONAVIR
     Indication: Product used for unknown indication
     Dosage: (NUMBER OF COURSE 1, NO PRIOR TO CONCEPTION, EXPOSURE DURING 2ND TRIMESTER, ONGOING
     Route: 064
     Dates: start: 20240509
  3. METRONIDAZOLE [Suspect]
     Active Substance: METRONIDAZOLE
     Indication: Product used for unknown indication
     Route: 064
  4. DARUNAVIR [Suspect]
     Active Substance: DARUNAVIR
     Indication: Product used for unknown indication
     Dosage: (NUMBER OF COURSE 1, NO PRIOR TO CONCEPTION, EXPOSURE DURING 2ND TRIMESTER, ONGOING AT
     Route: 064
     Dates: start: 20240509

REACTIONS (2)
  - Microcephaly [Unknown]
  - Foetal exposure during pregnancy [Unknown]
